FAERS Safety Report 25914411 (Version 1)
Quarter: 2025Q4

REPORT INFORMATION
  Report Type: Spontaneous
  Country: US (occurrence: US)
  Receive Date: 20251013
  Receipt Date: 20251013
  Transmission Date: 20260117
  Serious: No
  Sender: PFIZER
  Company Number: US-PFIZER INC-202500201195

PATIENT
  Sex: Female

DRUGS (2)
  1. NURTEC ODT [Suspect]
     Active Substance: RIMEGEPANT SULFATE
     Indication: Migraine
     Dosage: UNK, AS NEEDED
  2. QULIPTA [Concomitant]
     Active Substance: ATOGEPANT
     Indication: Migraine prophylaxis
     Dosage: UNK

REACTIONS (1)
  - Menstrual disorder [Unknown]
